FAERS Safety Report 4763929-0 (Version None)
Quarter: 2005Q3

REPORT INFORMATION
  Report Type: 
  Country: None (occurrence: None)
  Receive Date: 20050906
  Receipt Date: 20050822
  Transmission Date: 20060218
  Serious: Yes (Other)
  Sender: FDA-Public Use
  Company Number: 2005-0008648

PATIENT
  Age: 2 Day
  Sex: Male
  Weight: 3.0845 kg

DRUGS (5)
  1. TENOFOVIR DISOPROXIL FUMARATE (TENOFOVIR DISOPROXIL FUMARATE) [Suspect]
     Indication: HIV INFECTION
     Dosage: 600 MG,  1 IN 1 ONCE, TRANSPLACENTAL
     Route: 064
     Dates: start: 20050801, end: 20050801
  2. ZIDOVUDINE [Concomitant]
  3. ERYTHROMYCIN (ERYTHROMYCIN) (OINTMENT) [Concomitant]
  4. AQUAMEPHYTON (PHYTOMENADIONE) [Concomitant]
  5. HEPATITIS B VACCINE (HEPATITIS B VACCINE) [Concomitant]

REACTIONS (4)
  - BLOOD CREATINE PHOSPHOKINASE INCREASED [None]
  - DRUG EXPOSURE DURING PREGNANCY [None]
  - HYPOGLYCAEMIA NEONATAL [None]
  - NEONATAL DISORDER [None]
